FAERS Safety Report 11224761 (Version 1)
Quarter: 2015Q2

REPORT INFORMATION
  Report Type: Spontaneous
  Country: US (occurrence: US)
  Receive Date: 20150629
  Receipt Date: 20150629
  Transmission Date: 20150821
  Serious: No
  Sender: FDA-Public Use
  Company Number: US-PFIZER INC-2015212940

PATIENT
  Age: 49 Year
  Sex: Female
  Weight: 56 kg

DRUGS (5)
  1. XELJANZ [Suspect]
     Active Substance: TOFACITINIB CITRATE
     Indication: RHEUMATOID ARTHRITIS
     Dosage: 5 MG, 2X/DAY (ONE IN THE MORNING ONE IN NIGHT OR IN THE EVENING)
  2. GATORADE ENERGY DRINK [Interacting]
     Active Substance: CARBOHYDRATES\ELECTROLYTES NOS\VITAMINS
     Dosage: UNK
  3. ARAVA [Concomitant]
     Active Substance: LEFLUNOMIDE
     Dosage: UNK
  4. LISINOPRIL. [Concomitant]
     Active Substance: LISINOPRIL
     Dosage: UNK
  5. NABUMETONE. [Concomitant]
     Active Substance: NABUMETONE
     Indication: SWELLING
     Dosage: UNK

REACTIONS (3)
  - Nausea [Recovered/Resolved]
  - Drug interaction [Unknown]
  - Vomiting [Recovered/Resolved]
